FAERS Safety Report 25864864 (Version 1)
Quarter: 2025Q3

REPORT INFORMATION
  Report Type: Spontaneous
  Country: TW (occurrence: TW)
  Receive Date: 20250930
  Receipt Date: 20250930
  Transmission Date: 20251020
  Serious: Yes (Death)
  Sender: NOVITIUM PHARMA
  Company Number: TW-NOVITIUMPHARMA-2025TWNVP02393

PATIENT
  Age: 67 Year
  Sex: Male

DRUGS (9)
  1. PREDNISONE [Suspect]
     Active Substance: PREDNISONE
     Indication: Plasmablastic lymphoma
  2. ETOPOSIDE [Concomitant]
     Active Substance: ETOPOSIDE
  3. VINCRISTINE [Concomitant]
     Active Substance: VINCRISTINE
  4. CYCLOPHOSPHAMIDE [Concomitant]
     Active Substance: CYCLOPHOSPHAMIDE
  5. DOXORUBICIN [Concomitant]
     Active Substance: DOXORUBICIN
  6. METHOTREXATE [Concomitant]
     Active Substance: METHOTREXATE
  7. IFOSFAMIDE [Concomitant]
     Active Substance: IFOSFAMIDE
  8. CYTARABINE [Concomitant]
     Active Substance: CYTARABINE
  9. CARBOPLATIN [Concomitant]
     Active Substance: CARBOPLATIN

REACTIONS (1)
  - Drug ineffective [Fatal]
